FAERS Safety Report 6390705-8 (Version None)
Quarter: 2009Q4

REPORT INFORMATION
  Report Type: 
  Country: None (occurrence: None)
  Receive Date: 20091006
  Receipt Date: 20090929
  Transmission Date: 20100525
  Serious: Yes (Death)
  Sender: FDA-Public Use
  Company Number: ES-TEVA-210727ISR

PATIENT
  Age: 96 Year
  Sex: Female

DRUGS (3)
  1. PACLITAXEL [Suspect]
     Indication: METASTASES TO PERITONEUM
     Route: 042
     Dates: start: 20090421, end: 20090428
  2. CARBOPLATIN [Suspect]
     Indication: METASTASES TO PERITONEUM
     Route: 065
     Dates: start: 20080601, end: 20090401
  3. DOXORUBICIN HCL [Suspect]
     Indication: METASTASES TO PERITONEUM
     Route: 042
     Dates: start: 20090526, end: 20090526

REACTIONS (4)
  - DEEP VEIN THROMBOSIS [None]
  - HYPERKALAEMIA [None]
  - METASTASES TO PERITONEUM [None]
  - RENAL FAILURE ACUTE [None]
